FAERS Safety Report 13801856 (Version 1)
Quarter: 2017Q3

REPORT INFORMATION
  Report Type: Spontaneous
  Country: DK (occurrence: DK)
  Receive Date: 20170727
  Receipt Date: 20170727
  Transmission Date: 20171127
  Serious: Yes (Other)
  Sender: FDA-Public Use
  Company Number: DK-PFIZER INC-2017317546

PATIENT
  Age: 29 Year
  Sex: Female

DRUGS (1)
  1. SILDENAFIL CITRATE. [Suspect]
     Active Substance: SILDENAFIL CITRATE
     Indication: DRUG PROVOCATION TEST
     Dosage: 100 MG, UNK
     Dates: start: 20160303

REACTIONS (6)
  - Photopsia [Unknown]
  - Visual impairment [Unknown]
  - Eye opacity [Unknown]
  - Visual field defect [Unknown]
  - Product use in unapproved indication [Unknown]
  - Vitreous disorder [Unknown]

NARRATIVE: CASE EVENT DATE: 201603
